FAERS Safety Report 9041365 (Version 1)
Quarter: 2013Q1

REPORT INFORMATION
  Report Type: Spontaneous
  Country: US (occurrence: None)
  Receive Date: 20130125
  Receipt Date: 20130125
  Transmission Date: 20140127
  Serious: Yes (Hospitalization)
  Sender: FDA-Public Use
  Company Number: None

PATIENT
  Sex: Male
  Weight: 72.58 kg

DRUGS (10)
  1. NITROSTAT [Suspect]
     Indication: CARDIAC DISORDER
     Dosage: ONE TABLET AS NEEDED BY MOUTH?4-5 YEARS
     Route: 048
  2. AMLODIPINE [Concomitant]
  3. ATENOLOL [Concomitant]
  4. CITALOPRAM [Concomitant]
  5. SIMVASTATIN [Concomitant]
  6. ASPIRIN [Concomitant]
  7. RISPERIDONE [Concomitant]
  8. CETRITE [Concomitant]
  9. BENZTROPINE [Concomitant]
  10. JANUMET [Concomitant]

REACTIONS (1)
  - Drug ineffective [None]
